FAERS Safety Report 14542979 (Version 1)
Quarter: 2018Q1

REPORT INFORMATION
  Report Type: Spontaneous
  Country: US (occurrence: US)
  Receive Date: 20180216
  Receipt Date: 20180216
  Transmission Date: 20180509
  Serious: Yes (Hospitalization)
  Sender: FDA-Public Use
  Company Number: US-LANTHEUS-LMI-2017-00171

PATIENT
  Age: 50 Year
  Sex: Male
  Weight: 192 kg

DRUGS (1)
  1. DEFINITY [Suspect]
     Active Substance: PERFLUTREN
     Indication: ECHOCARDIOGRAM
     Dosage: 3 ML (1.3 ML DEFINITY PREPARED IN 8.7 ML DILUENT)
     Route: 040
     Dates: start: 20170412, end: 20170412

REACTIONS (11)
  - Visual impairment [Recovered/Resolved]
  - Peripheral swelling [Recovered/Resolved]
  - Flushing [Recovered/Resolved]
  - Hypoaesthesia oral [Recovered/Resolved]
  - Urticaria [Recovered/Resolved]
  - Hyperhidrosis [Recovered/Resolved]
  - Oxygen saturation decreased [Recovered/Resolved]
  - Ventricular tachycardia [Recovered/Resolved]
  - Blood pressure decreased [Recovered/Resolved]
  - Anaphylactic reaction [Recovered/Resolved]
  - Dyspnoea [Recovered/Resolved]

NARRATIVE: CASE EVENT DATE: 20170412
